FAERS Safety Report 7923286-5 (Version None)
Quarter: 2011Q4

REPORT INFORMATION
  Report Type: 
  Country: None (occurrence: None)
  Receive Date: 20111117
  Receipt Date: 20110131
  Transmission Date: 20120403
  Serious: Yes (Other)
  Sender: FDA-Public Use
  Company Number: US-AMGEN-USASP2011005885

PATIENT
  Age: 43 Year
  Sex: Male

DRUGS (4)
  1. ENBREL [Suspect]
     Indication: SPINAL COLUMN STENOSIS
  2. ENBREL [Suspect]
     Indication: PSORIATIC ARTHROPATHY
  3. ENBREL [Suspect]
     Indication: RHEUMATOID ARTHRITIS
     Dosage: 50 MG, QWK
  4. ENBREL [Suspect]
     Indication: ANKYLOSING SPONDYLITIS

REACTIONS (4)
  - INFECTION [None]
  - NEUTROPENIA [None]
  - INJECTION SITE PRURITUS [None]
  - PANCYTOPENIA [None]
